FAERS Safety Report 9240741 (Version 1)
Quarter: 2013Q1

REPORT INFORMATION
  Report Type: Spontaneous
  Country: US (occurrence: None)
  Receive Date: 20121120
  Receipt Date: 20121120
  Transmission Date: 20140127
  Serious: No
  Sender: FDA-Public Use
  Company Number: 1000038926

PATIENT
  Age: 47 Year
  Sex: Female

DRUGS (12)
  1. VIIBRYD [Suspect]
     Indication: DEPRESSION
     Dosage: 10 MG (10 MG, 1 IN 1 D), ORAL
     Dates: start: 20120830, end: 20120905
  2. HYDROCODONE [Concomitant]
  3. NEURONTIN [Concomitant]
  4. XANAX [Concomitant]
  5. OPANA [Concomitant]
  6. BACLOFEN [Concomitant]
  7. ESTRACE [Concomitant]
  8. ZOFRAN [Concomitant]
  9. LACTULOSE [Concomitant]
  10. BLACK COHOSH [Concomitant]
  11. PRENATAL VITAMIN [Concomitant]
  12. HAIR, SKIN, AND NAILS SUPPLEMENT (HAIR, SKIN, AND NAILS SUPPLEMENT) (HAIR, SKIN, AND NAILS SUPPLEMENT) [Concomitant]

REACTIONS (8)
  - Muscle twitching [None]
  - Dysgeusia [None]
  - Insomnia [None]
  - Dry mouth [None]
  - Vision blurred [None]
  - Migraine [None]
  - Dizziness [None]
  - Nausea [None]
